FAERS Safety Report 14802092 (Version 2)
Quarter: 2018Q4

REPORT INFORMATION
  Report Type: Spontaneous
  Country: US (occurrence: US)
  Receive Date: 20180424
  Receipt Date: 20181023
  Transmission Date: 20190204
  Serious: Yes (Other)
  Sender: FDA-Public Use
  Company Number: US-NAPPMUNDI-USA-2017-0142008

PATIENT
  Sex: Male

DRUGS (1)
  1. OXYCONTIN [Suspect]
     Active Substance: OXYCODONE HYDROCHLORIDE
     Indication: INTERVERTEBRAL DISC PROTRUSION
     Dosage: UNK
     Route: 048

REACTIONS (7)
  - Drug withdrawal syndrome [Unknown]
  - Euphoric mood [Unknown]
  - Restlessness [Unknown]
  - Diarrhoea [Unknown]
  - Feeling of relaxation [Unknown]
  - Drug dependence [Unknown]
  - Abdominal pain [Unknown]

NARRATIVE: CASE EVENT DATE: 2009
